FAERS Safety Report 24815267 (Version 1)
Quarter: 2025Q1

REPORT INFORMATION
  Report Type: Spontaneous
  Country: CA (occurrence: CA)
  Receive Date: 20250107
  Receipt Date: 20250107
  Transmission Date: 20250409
  Serious: Yes (Hospitalization, Other)
  Sender: TEVA
  Company Number: CA-TEVA-VS-3283624

PATIENT
  Age: 46 Year
  Sex: Male

DRUGS (2)
  1. CARBOPLATIN [Suspect]
     Active Substance: CARBOPLATIN
     Indication: Adenocarcinoma metastatic
     Route: 065
  2. PEMETREXED [Suspect]
     Active Substance: PEMETREXED
     Indication: Adenocarcinoma metastatic
     Route: 065

REACTIONS (5)
  - Palpitations [Unknown]
  - Disease progression [Unknown]
  - Lymphadenopathy mediastinal [Unknown]
  - Therapy partial responder [Unknown]
  - Bone lesion [Unknown]
